FAERS Safety Report 20220736 (Version 2)
Quarter: 2022Q1

REPORT INFORMATION
  Report Type: Spontaneous
  Country: US (occurrence: US)
  Receive Date: 20211223
  Receipt Date: 20220106
  Transmission Date: 20220423
  Serious: Yes (Death)
  Sender: FDA-Public Use
  Company Number: US-CELLTRION INC.-2021US017371

PATIENT

DRUGS (2)
  1. TRUXIMA [Suspect]
     Active Substance: RITUXIMAB-ABBS
     Indication: Non-Hodgkin^s lymphoma
     Dosage: 960 MG (10MG/ML) , EVERY 21 DAYS
  2. TRUXIMA [Suspect]
     Active Substance: RITUXIMAB-ABBS
     Dosage: LAST DOSE
     Dates: start: 20210901

REACTIONS (1)
  - COVID-19 [Fatal]
